FAERS Safety Report 10176097 (Version 1)
Quarter: 2014Q2

REPORT INFORMATION
  Report Type: Spontaneous
  Country: US (occurrence: None)
  Receive Date: 20140515
  Receipt Date: 20140515
  Transmission Date: 20141212
  Serious: No
  Sender: FDA-Public Use
  Company Number: None

PATIENT
  Age: 61 Year
  Sex: Female

DRUGS (10)
  1. CAPECITABINE [Suspect]
     Indication: PRODUCT USED FOR UNKNOWN INDICATION
     Route: 048
     Dates: start: 20140426
  2. VITAMIN B [Concomitant]
  3. TUMERIC [Concomitant]
  4. LOVASTATIN [Concomitant]
  5. WELLBUTRIN [Concomitant]
  6. BUPROPION [Concomitant]
  7. NEXIUM [Concomitant]
  8. VITAMIN D [Concomitant]
  9. CALCIUM [Concomitant]
  10. POTASSIUM CL [Concomitant]

REACTIONS (1)
  - Hypoaesthesia [None]
